FAERS Safety Report 4798068-6 (Version None)
Quarter: 2005Q4

REPORT INFORMATION
  Report Type: 
  Country: None (occurrence: None)
  Receive Date: 20051006
  Receipt Date: 20051006
  Transmission Date: 20060501
  Serious: No
  Sender: FDA-Public Use
  Company Number: None

PATIENT
  Age: 61 Year
  Sex: Male
  Weight: 56 kg

DRUGS (1)
  1. REGULAR INSULIN [Suspect]
     Indication: DIABETES MELLITUS
     Dosage: SSI
     Dates: start: 20050202, end: 20050208

REACTIONS (5)
  - BLOOD GLUCOSE FLUCTUATION [None]
  - DRUG EFFECT DECREASED [None]
  - INCORRECT DRUG ADMINISTRATION DURATION [None]
  - LOSS OF CONSCIOUSNESS [None]
  - MEDICATION ERROR [None]
